FAERS Safety Report 4491328-8 (Version None)
Quarter: 2004Q4

REPORT INFORMATION
  Report Type: 
  Country: None (occurrence: None)
  Receive Date: 20041101
  Receipt Date: 20041101
  Transmission Date: 20050328
  Serious: Yes (Hospitalization)
  Sender: FDA-Public Use
  Company Number: None

PATIENT
  Age: 75 Year
  Sex: Female

DRUGS (2)
  1. OXYCODONE [Suspect]
     Indication: PAIN
     Route: 065
  2. LORAZEPAM [Suspect]
     Route: 065

REACTIONS (3)
  - DELIRIUM [None]
  - DEMENTIA [None]
  - MENTAL STATUS CHANGES [None]
